FAERS Safety Report 6620383-1 (Version None)
Quarter: 2010Q1

REPORT INFORMATION
  Report Type: 
  Country: None (occurrence: None)
  Receive Date: 20100308
  Receipt Date: 20100308
  Transmission Date: 20100710
  Serious: Yes (Hospitalization)
  Sender: FDA-Public Use
  Company Number: None

PATIENT
  Sex: Female
  Weight: 80 kg

DRUGS (2)
  1. CARBOPLATIN [Suspect]
     Dosage: 415 MG
  2. TAXOL [Suspect]
     Dosage: 315 MG

REACTIONS (2)
  - CYSTITIS HAEMORRHAGIC [None]
  - URINARY TRACT INFECTION [None]
